FAERS Safety Report 15391570 (Version 2)
Quarter: 2019Q2

REPORT INFORMATION
  Report Type: Spontaneous
  Country: US (occurrence: US)
  Receive Date: 20180917
  Receipt Date: 20190419
  Transmission Date: 20190711
  Serious: No
  Sender: FDA-Public Use
  Company Number: US-CELGENEUS-USA-20180905742

PATIENT
  Sex: Female

DRUGS (2)
  1. OTEZLA [Suspect]
     Active Substance: APREMILAST
     Indication: PRODUCT USED FOR UNKNOWN INDICATION
     Dosage: STARTER KIT
     Route: 048
     Dates: start: 20160405
  2. OTEZLA [Suspect]
     Active Substance: APREMILAST
     Dosage: 60 MILLIGRAM
     Route: 048

REACTIONS (6)
  - Skin irritation [Unknown]
  - Sinusitis [Unknown]
  - Diarrhoea [Unknown]
  - Therapy cessation [Unknown]
  - Dyspepsia [Unknown]
  - Fatigue [Unknown]
